FAERS Safety Report 6368483-8 (Version None)
Quarter: 2009Q3

REPORT INFORMATION
  Report Type: 
  Country: None (occurrence: None)
  Receive Date: 20090922
  Receipt Date: 20090917
  Transmission Date: 20100115
  Serious: Yes (Other)
  Sender: FDA-Public Use
  Company Number: A0808143A

PATIENT
  Sex: Female
  Weight: 49.1 kg

DRUGS (5)
  1. ADVAIR HFA [Suspect]
     Indication: ASTHMA
     Route: 055
     Dates: start: 20080101, end: 20090601
  2. ADVAIR HFA [Suspect]
     Route: 055
     Dates: start: 20090701
  3. ASMACORT [Suspect]
     Indication: ASTHMA
     Dosage: 4PUFF UNKNOWN
     Route: 055
     Dates: start: 19910101, end: 20080101
  4. ASMACORT [Suspect]
     Dosage: 6PUFF UNKNOWN
     Route: 055
     Dates: start: 20090601, end: 20090701
  5. SALINE [Concomitant]
     Route: 045

REACTIONS (1)
  - ANOSMIA [None]
